FAERS Safety Report 23737019 (Version 1)
Quarter: 2024Q2

REPORT INFORMATION
  Report Type: Spontaneous
  Country: US (occurrence: None)
  Receive Date: 20240411
  Receipt Date: 20240411
  Transmission Date: 20240716
  Serious: No
  Sender: FDA-Public Use
  Company Number: None

PATIENT
  Sex: Female

DRUGS (4)
  1. XOLAIR [Suspect]
     Active Substance: OMALIZUMAB
     Indication: Idiopathic urticaria
     Dosage: FREQUENCY : MONTHLY;?
     Route: 058
     Dates: start: 20220811
  2. HYDROCHLOROT CAP 12.5MG [Concomitant]
  3. RIZATRIPTAN TAB 10MG [Concomitant]
  4. ZYRTEC ALLGY TAB 10MG [Concomitant]

REACTIONS (1)
  - Breast cancer [None]
